FAERS Safety Report 5191260-0 (Version None)
Quarter: 2006Q4

REPORT INFORMATION
  Report Type: 
  Country: None (occurrence: None)
  Receive Date: 20061220
  Receipt Date: 20061220
  Transmission Date: 20070319
  Serious: Yes (Hospitalization)
  Sender: FDA-Public Use
  Company Number: None

PATIENT
  Age: 51 Year
  Sex: Female
  Weight: 139 kg

DRUGS (3)
  1. PIROXICAM [Suspect]
     Indication: FOOT OPERATION
     Dosage: 20MG PO DAILY
     Route: 048
     Dates: start: 20060908
  2. PIROXICAM [Suspect]
     Indication: PROCEDURAL PAIN
     Dosage: 20MG PO DAILY
     Route: 048
     Dates: start: 20060908
  3. VICODIN [Concomitant]

REACTIONS (6)
  - ANAEMIA [None]
  - DIZZINESS [None]
  - DUODENAL ULCER [None]
  - FAECES DISCOLOURED [None]
  - GASTROINTESTINAL HAEMORRHAGE [None]
  - SYNCOPE [None]
